FAERS Safety Report 18120518 (Version 1)
Quarter: 2020Q3

REPORT INFORMATION
  Report Type: Spontaneous
  Country: US (occurrence: US)
  Receive Date: 20200806
  Receipt Date: 20200806
  Transmission Date: 20201103
  Serious: No
  Sender: FDA-Public Use
  Company Number: US-RISING PHARMA HOLDINGS, INC.-2020RIS00257

PATIENT
  Sex: Female
  Weight: 45.36 kg

DRUGS (3)
  1. PREGABALIN. [Suspect]
     Active Substance: PREGABALIN
     Indication: PAIN
     Dosage: 75 MG, 2X/DAY
     Route: 048
     Dates: start: 2019, end: 202004
  2. PREGABALIN. [Suspect]
     Active Substance: PREGABALIN
     Indication: PROCEDURAL PAIN
  3. TRAMADOL. [Concomitant]
     Active Substance: TRAMADOL

REACTIONS (8)
  - Hypophagia [Recovering/Resolving]
  - Illness [Recovering/Resolving]
  - Nausea [Recovering/Resolving]
  - Product odour abnormal [Recovered/Resolved]
  - Product colour issue [Recovered/Resolved]
  - Product use in unapproved indication [Recovered/Resolved]
  - Vertigo [Recovering/Resolving]
  - Product taste abnormal [Recovered/Resolved]

NARRATIVE: CASE EVENT DATE: 2019
